FAERS Safety Report 4594809-1 (Version None)
Quarter: 2005Q1

REPORT INFORMATION
  Report Type: 
  Country: None (occurrence: None)
  Receive Date: 20050223
  Receipt Date: 20050211
  Transmission Date: 20050727
  Serious: No
  Sender: FDA-Public Use
  Company Number: 05H-087-0290639-00

PATIENT
  Age: 54 Year
  Sex: Female

DRUGS (3)
  1. PENTAZOCINE INJECTION (TALWIN INJECTION) [Suspect]
     Indication: ABDOMINAL PAIN
     Dosage: 15 MG, ONCE, INTRAMUSCULAR
     Route: 030
     Dates: start: 20050114
  2. PENTAZOCINE INJECTION (TALWIN INJECTION) [Suspect]
     Indication: CALCULUS URETERIC
     Dosage: 15 MG, ONCE, INTRAMUSCULAR
     Route: 030
     Dates: start: 20050114
  3. IOHEXOL [Concomitant]

REACTIONS (7)
  - BLOOD PRESSURE SYSTOLIC INCREASED [None]
  - DEPRESSED LEVEL OF CONSCIOUSNESS [None]
  - HYPERVENTILATION [None]
  - PO2 INCREASED [None]
  - POST PROCEDURAL COMPLICATION [None]
  - RESPIRATORY RATE INCREASED [None]
  - SHOCK [None]
